FAERS Safety Report 8258970-X (Version None)
Quarter: 2012Q2

REPORT INFORMATION
  Report Type: 
  Country: None (occurrence: None)
  Receive Date: 20120403
  Receipt Date: 20120403
  Transmission Date: 20120825
  Serious: No
  Sender: FDA-Public Use
  Company Number: None

PATIENT
  Age: 75 Year
  Sex: Male
  Weight: 81 kg

DRUGS (1)
  1. GABAPENTIN [Suspect]
     Dosage: 300 MG UD PO
     Route: 048
     Dates: start: 20111115, end: 20120130

REACTIONS (3)
  - SWELLING FACE [None]
  - IRRITABILITY [None]
  - OEDEMA PERIPHERAL [None]
